FAERS Safety Report 4796756-9 (Version None)
Quarter: 2005Q4

REPORT INFORMATION
  Report Type: 
  Country: None (occurrence: None)
  Receive Date: 20051007
  Receipt Date: 20050927
  Transmission Date: 20060501
  Serious: Yes (Other)
  Sender: FDA-Public Use
  Company Number: 2005135317

PATIENT
  Age: 71 Year
  Sex: Female

DRUGS (4)
  1. TAHOR (ATORVASTATIN) [Suspect]
     Indication: HYPERCHOLESTEROLAEMIA
     Dosage: 20 MG (20 MG)
     Dates: start: 20050101
  2. HYPERIUM (RILMENIDINE) [Concomitant]
  3. COZAAR [Concomitant]
  4. ALDALIX (FUROSEMIDE, SPIRONOLACTONE) [Concomitant]

REACTIONS (1)
  - PLATELET COUNT INCREASED [None]
